FAERS Safety Report 22288334 (Version 1)
Quarter: 2023Q2

REPORT INFORMATION
  Report Type: Spontaneous
  Country: US (occurrence: None)
  Receive Date: 20230504
  Receipt Date: 20230504
  Transmission Date: 20230722
  Serious: Yes (Death)
  Sender: FDA-Public Use
  Company Number: None

PATIENT
  Age: 51 Year
  Sex: Female
  Weight: 68.95 kg

DRUGS (13)
  1. CAPECITABINE [Suspect]
     Active Substance: CAPECITABINE
     Indication: Breast cancer female
     Dosage: FREQUENCY : TWICE A DAY;?
     Route: 048
  2. ACETAMINOPHEN [Concomitant]
  3. CYCLOBENZAPRINE [Concomitant]
     Active Substance: CYCLOBENZAPRINE
  4. FUROSEMIDE [Concomitant]
     Active Substance: FUROSEMIDE
  5. IBUPROFEN [Concomitant]
     Active Substance: IBUPROFEN
  6. LACTULOSE [Concomitant]
     Active Substance: LACTULOSE
  7. LIDOCAINE [Concomitant]
     Active Substance: LIDOCAINE
  8. MORPHINE [Concomitant]
     Active Substance: MORPHINE
  9. VITAMINS [Concomitant]
     Active Substance: VITAMINS
  10. NALOXOME [Concomitant]
  11. ONDANSETRON [Concomitant]
  12. PREGABALIN [Concomitant]
  13. SENNA [Concomitant]
     Active Substance: SENNA LEAF\SENNOSIDES\SENNOSIDES A AND B

REACTIONS (1)
  - Death [None]
